FAERS Safety Report 4355846-5 (Version None)
Quarter: 2004Q2

REPORT INFORMATION
  Report Type: 
  Country: None (occurrence: None)
  Receive Date: 20040505
  Receipt Date: 20040419
  Transmission Date: 20050107
  Serious: Yes (Death, Hospitalization)
  Sender: FDA-Public Use
  Company Number: DSA_24272_2004

PATIENT
  Age: 77 Year
  Sex: Female

DRUGS (6)
  1. VASOTEC [Suspect]
     Indication: HYPERTENSION
     Dates: start: 19990101, end: 20030101
  2. DEPAKOTE [Suspect]
     Indication: BIPOLAR DISORDER
  3. LEVOTHYROXINE [Concomitant]
  4. NAPROSYN [Concomitant]
  5. TYLENOL W/ CODEINE NO. 3 [Concomitant]
  6. ATACAND [Concomitant]

REACTIONS (6)
  - ACUTE RESPIRATORY DISTRESS SYNDROME [None]
  - BLOOD PRESSURE INCREASED [None]
  - CARDIAC FAILURE CONGESTIVE [None]
  - DRUG INEFFECTIVE [None]
  - DRUG INTERACTION [None]
  - MULTI-ORGAN FAILURE [None]
